FAERS Safety Report 6834156-8 (Version None)
Quarter: 2010Q3

REPORT INFORMATION
  Report Type: 
  Country: None (occurrence: None)
  Receive Date: 20100712
  Receipt Date: 20070419
  Transmission Date: 20110219
  Serious: No
  Sender: FDA-Public Use
  Company Number: US-PFIZER INC-2007033232

PATIENT
  Age: 36 Year
  Sex: Female
  Weight: 77.11 kg

DRUGS (1)
  1. CHANTIX [Suspect]
     Indication: SMOKING CESSATION THERAPY
     Route: 048
     Dates: start: 20070405

REACTIONS (7)
  - ABNORMAL DREAMS [None]
  - ANXIETY [None]
  - DISTURBANCE IN ATTENTION [None]
  - FATIGUE [None]
  - FLATULENCE [None]
  - NAUSEA [None]
  - SLEEP DISORDER [None]
